FAERS Safety Report 7180289-9 (Version None)
Quarter: 2010Q4

REPORT INFORMATION
  Report Type: 
  Country: None (occurrence: None)
  Receive Date: 20101209
  Receipt Date: 20101130
  Transmission Date: 20110411
  Serious: Yes (Hospitalization, Other)
  Sender: FDA-Public Use
  Company Number: 2010120004

PATIENT
  Age: 37 Year
  Sex: Female

DRUGS (6)
  1. FELBATOL [Suspect]
     Indication: EPILEPSY
     Dosage: 3600 MG (1200 MG, 3 IN 1 D), ORAL
     Route: 048
     Dates: start: 20100701, end: 20101128
  2. EXTRA STRENGTH TYLENOL [Suspect]
     Indication: FACIAL PAIN
     Dosage: 2000 MG, EVERY 3-4 HOURS, ORAL
     Route: 048
     Dates: start: 20101124, end: 20101126
  3. TYLENOL W/ CODEINE [Suspect]
     Indication: PAIN
     Dosage: ORAL
     Route: 048
     Dates: start: 20101124, end: 20101124
  4. TOPAMAX [Concomitant]
  5. LYRICA [Concomitant]
  6. DEPO-PROVERA [Concomitant]

REACTIONS (2)
  - FACE INJURY [None]
  - HEPATITIS ACUTE [None]
